FAERS Safety Report 4611410-1 (Version None)
Quarter: 2005Q2

REPORT INFORMATION
  Report Type: 
  Country: None (occurrence: None)
  Receive Date: 20050311
  Receipt Date: 20041123
  Transmission Date: 20051028
  Serious: No
  Sender: FDA-Public Use
  Company Number: 2004-BP-12278BP

PATIENT
  Age: 79 Year
  Sex: Female

DRUGS (8)
  1. SPIRIVA [Suspect]
     Indication: CHRONIC OBSTRUCTIVE PULMONARY DISEASE
     Dosage: 18 MCG (18 MCG), IH
     Route: 055
     Dates: start: 20041112
  2. ADVAIR DISKUS 100/50 [Concomitant]
  3. ALBUTEROL [Concomitant]
  4. NORVASC [Concomitant]
  5. PRAVACHOL [Concomitant]
  6. NEXIUM [Concomitant]
  7. TYLENOL [Concomitant]
  8. ZOLOFT [Concomitant]

REACTIONS (3)
  - DRY MOUTH [None]
  - ORAL PAIN [None]
  - PHARYNGOLARYNGEAL PAIN [None]
